FAERS Safety Report 7678529-2 (Version None)
Quarter: 2011Q3

REPORT INFORMATION
  Report Type: 
  Country: None (occurrence: None)
  Receive Date: 20110811
  Receipt Date: 20110811
  Transmission Date: 20111222
  Serious: Yes (Hospitalization)
  Sender: FDA-Public Use
  Company Number: US-ROXANE LABORATORIES, INC.-2011-RO-00935RO

PATIENT
  Sex: Male

DRUGS (2)
  1. CIPROFLOXACIN [Suspect]
     Route: 048
  2. PREDNISONE [Suspect]
     Route: 048

REACTIONS (1)
  - DRUG INEFFECTIVE [None]
